FAERS Safety Report 11728685 (Version 1)
Quarter: 2015Q4

REPORT INFORMATION
  Report Type: Spontaneous
  Country: US (occurrence: US)
  Receive Date: 20151110
  Receipt Date: 20151110
  Transmission Date: 20160304
  Serious: No
  Sender: FDA-Public Use
  Company Number: US-ELI_LILLY_AND_COMPANY-US201112002266

PATIENT
  Age: 62 Year
  Sex: Female

DRUGS (3)
  1. FORTEO [Suspect]
     Active Substance: TERIPARATIDE
     Dosage: 20 UG, QD
     Route: 065
     Dates: start: 20111202, end: 20111204
  2. ANTIHYPERTENSIVES [Concomitant]
     Active Substance: UNSPECIFIED INGREDIENT
  3. FORTEO [Suspect]
     Active Substance: TERIPARATIDE
     Indication: OSTEOPOROSIS
     Dosage: 20 UG, QD
     Route: 065
     Dates: start: 20111104, end: 20111201

REACTIONS (10)
  - Intentional product misuse [Unknown]
  - Swelling [Unknown]
  - Blood pressure decreased [Unknown]
  - Arthritis [Unknown]
  - Dizziness [Unknown]
  - Erythema [Unknown]
  - Arthralgia [Unknown]
  - Burning sensation [Unknown]
  - Incorrect product storage [Unknown]
  - Rash [Unknown]

NARRATIVE: CASE EVENT DATE: 20111111
